FAERS Safety Report 5068515-3 (Version None)
Quarter: 2006Q3

REPORT INFORMATION
  Report Type: 
  Country: None (occurrence: None)
  Receive Date: 20060802
  Receipt Date: 20051102
  Transmission Date: 20061208
  Serious: No
  Sender: FDA-Public Use
  Company Number: US-BRISTOL-MYERS SQUIBB COMPANY-13165741

PATIENT
  Age: 56 Year
  Sex: Male
  Weight: 102 kg

DRUGS (6)
  1. COUMADIN [Suspect]
     Indication: ATRIAL FIBRILLATION
     Dosage: AS OF 31-OCT-2005 WAS TAKING 5 MG DAILY ALTERNATING WITH 2.5 MG EVERY OTHER DAY
     Dates: start: 20051021
  2. SOTALOL HCL [Concomitant]
  3. ZOCOR [Concomitant]
  4. PLAVIX [Concomitant]
  5. COZAAR [Concomitant]
  6. MULTI-VITAMIN [Concomitant]

REACTIONS (1)
  - URTICARIA [None]
